FAERS Safety Report 5812764-0 (Version None)
Quarter: 2008Q3

REPORT INFORMATION
  Report Type: 
  Country: None (occurrence: None)
  Receive Date: 20080714
  Receipt Date: 20080714
  Transmission Date: 20090109
  Serious: No
  Sender: FDA-Public Use
  Company Number: None

PATIENT
  Sex: Female
  Weight: 59.7 kg

DRUGS (12)
  1. CARBOPLATIN [Suspect]
     Dosage: 393 MG
  2. TAXOL [Suspect]
     Dosage: 287 MG
  3. NEULASTA [Suspect]
     Dosage: 6 MG
  4. COMPAZINE [Concomitant]
  5. DEXAMETHASONE [Concomitant]
  6. HERBAL SUPPLEMENT [Concomitant]
  7. LISINOPRIL [Concomitant]
  8. MULTI-VITAMIN [Concomitant]
  9. OXYCODONE HCL [Concomitant]
  10. SIMVASTIN [Concomitant]
  11. SLEEP-EZE [Concomitant]
  12. VICODIN [Concomitant]

REACTIONS (3)
  - FALL [None]
  - PERFORMANCE STATUS DECREASED [None]
  - PERIPHERAL SENSORY NEUROPATHY [None]
